FAERS Safety Report 10652451 (Version 13)
Quarter: 2016Q2

REPORT INFORMATION
  Report Type: Report from Study
  Country: US (occurrence: US)
  Receive Date: 20141215
  Receipt Date: 20160519
  Transmission Date: 20160815
  Serious: Yes (Hospitalization, Other)
  Sender: FDA-Public Use
  Company Number: US-ALEXION PHARMACEUTICALS INC.-A201404669

PATIENT
  Sex: Female

DRUGS (3)
  1. SOLIRIS [Suspect]
     Active Substance: ECULIZUMAB
     Dosage: UNK
     Route: 042
  2. SOLIRIS [Suspect]
     Active Substance: ECULIZUMAB
     Indication: HAEMOLYTIC URAEMIC SYNDROME
     Dosage: UNK
     Route: 042
  3. SOLIRIS [Suspect]
     Active Substance: ECULIZUMAB
     Dosage: UNK
     Route: 042

REACTIONS (22)
  - Platelet count abnormal [Not Recovered/Not Resolved]
  - Blood lactate dehydrogenase increased [Unknown]
  - Urine output decreased [Recovering/Resolving]
  - Pyrexia [Unknown]
  - Pyrexia [Unknown]
  - Nausea [Unknown]
  - Hypertension [Unknown]
  - Complement factor C4 decreased [Unknown]
  - Platelet count decreased [Not Recovered/Not Resolved]
  - Blood creatinine abnormal [Recovering/Resolving]
  - Cyst [Unknown]
  - Abdominal pain [Recovered/Resolved]
  - Diarrhoea [Unknown]
  - Reticulocyte count abnormal [Unknown]
  - Blood creatinine abnormal [Not Recovered/Not Resolved]
  - Systemic lupus erythematosus [Unknown]
  - Fatigue [Not Recovered/Not Resolved]
  - Urinary tract infection [Unknown]
  - Pneumonia [Unknown]
  - Dyspnoea [Unknown]
  - Platelet count abnormal [Recovering/Resolving]
  - Back pain [Unknown]

NARRATIVE: CASE EVENT DATE: 200902
